FAERS Safety Report 4840028-0 (Version None)
Quarter: 2005Q4

REPORT INFORMATION
  Report Type: 
  Country: None (occurrence: None)
  Receive Date: 20051125
  Receipt Date: 20051114
  Transmission Date: 20060501
  Serious: No
  Sender: FDA-Public Use
  Company Number: 05H-144-0303684-00

PATIENT
  Age: 6 Month
  Sex: Male

DRUGS (5)
  1. NITROPRESS [Suspect]
     Indication: HYPERTENSION
     Dosage: 8 MCG KG-1 MIN-1, INFUSION
  2. NITRIC OXIDE (NITRIC OXIDE) [Concomitant]
  3. DOPAMINE HCL [Concomitant]
  4. MILRINONE (MILRINONE) [Concomitant]
  5. ISOPROTERENOL (ISOPRENALINE) [Concomitant]

REACTIONS (1)
  - CARBOXYHAEMOGLOBINAEMIA [None]
